FAERS Safety Report 16348852 (Version 1)
Quarter: 2019Q2

REPORT INFORMATION
  Report Type: Spontaneous
  Country: US (occurrence: US)
  Receive Date: 20190523
  Receipt Date: 20190523
  Transmission Date: 20190711
  Serious: Yes (Hospitalization)
  Sender: FDA-Public Use
  Company Number: US-ELI_LILLY_AND_COMPANY-US201905010961

PATIENT
  Age: 50 Year
  Sex: Female
  Weight: 73.7 kg

DRUGS (7)
  1. OLARATUMAB [Suspect]
     Active Substance: OLARATUMAB
     Dosage: 334 MG
     Route: 042
     Dates: start: 20181207
  2. DIPHENHYDRAMINE. [Concomitant]
     Active Substance: DIPHENHYDRAMINE
     Indication: PREMEDICATION
     Dosage: 50 MG
     Route: 042
     Dates: start: 20181207
  3. DOXORUBICIN [Concomitant]
     Active Substance: DOXORUBICIN
     Indication: PRODUCT USED FOR UNKNOWN INDICATION
     Dosage: UNK
     Route: 065
     Dates: start: 20181207, end: 20181207
  4. OLARATUMAB [Suspect]
     Active Substance: OLARATUMAB
     Indication: SARCOMA UTERUS
     Dosage: 1000 MG, EVERY 21 DAYS
     Route: 042
     Dates: start: 20181207, end: 20181207
  5. MORPHINE [Concomitant]
     Active Substance: MORPHINE
     Indication: PAIN
     Dosage: 8 MG
     Route: 060
     Dates: start: 20181207
  6. MS CONTIN [Concomitant]
     Active Substance: MORPHINE SULFATE
     Indication: PAIN
     Dosage: 30 MG, TID
     Route: 048
  7. DEXAMETHASONE. [Concomitant]
     Active Substance: DEXAMETHASONE
     Indication: PREMEDICATION
     Dosage: 20 MG
     Route: 042
     Dates: start: 20181207

REACTIONS (1)
  - Infusion related reaction [Recovered/Resolved]

NARRATIVE: CASE EVENT DATE: 20181207
